FAERS Safety Report 5557800-4 (Version None)
Quarter: 2007Q4

REPORT INFORMATION
  Report Type: 
  Country: None (occurrence: None)
  Receive Date: 20071214
  Receipt Date: 20071212
  Transmission Date: 20080405
  Serious: Yes (Death)
  Sender: FDA-Public Use
  Company Number: CA-ASTRAZENECA-2007UW28129

PATIENT
  Age: 49 Year
  Sex: Male

DRUGS (3)
  1. SEROQUEL [Suspect]
     Route: 048
  2. VENLAFAXINE HCL [Suspect]
  3. PAROXETINE [Suspect]

REACTIONS (1)
  - DRUG TOXICITY [None]
